FAERS Safety Report 26106506 (Version 1)
Quarter: 2025Q4

REPORT INFORMATION
  Report Type: Other
  Country: GB (occurrence: GB)
  Receive Date: 20251201
  Receipt Date: 20251201
  Transmission Date: 20260117
  Serious: Yes (Disabling)
  Sender: MACLEODS
  Company Number: None

PATIENT

DRUGS (1)
  1. ARIPIPRAZOLE [Suspect]
     Active Substance: ARIPIPRAZOLE
     Indication: Product used for unknown indication
     Dosage: 5MG DAILY
     Dates: start: 20251010, end: 20251105

REACTIONS (2)
  - Mobility decreased [Recovering/Resolving]
  - Activities of daily living decreased [Unknown]

NARRATIVE: CASE EVENT DATE: 20251022
